FAERS Safety Report 19661378 (Version 14)
Quarter: 2023Q4

REPORT INFORMATION
  Report Type: Spontaneous
  Country: US (occurrence: US)
  Receive Date: 20210805
  Receipt Date: 20231218
  Transmission Date: 20240110
  Serious: Yes (Other)
  Sender: FDA-Public Use
  Company Number: US-PFIZER INC-202100924522

PATIENT
  Age: 77 Year
  Sex: Female

DRUGS (6)
  1. IBRANCE [Suspect]
     Active Substance: PALBOCICLIB
     Dosage: 125 MG, CYCLIC
     Dates: start: 20210708
  2. IBRANCE [Suspect]
     Active Substance: PALBOCICLIB
     Dosage: 100 MG, CYCLIC
  3. IBRANCE [Suspect]
     Active Substance: PALBOCICLIB
     Dosage: 100 MG
     Dates: start: 20210714, end: 20220104
  4. IBRANCE [Suspect]
     Active Substance: PALBOCICLIB
     Dosage: 100 MG, CYCLIC (TAKE 1 TABLET, ONCE DAILY FOR 17 DAYS ON, FOLLOWED BY 11 DAYS OFF FOR 28 DAY CYCLE)
     Route: 048
  5. IBRANCE [Suspect]
     Active Substance: PALBOCICLIB
     Dosage: 100 MG, CYCLIC (ONE TABLET DAILY FOR 2 WKS-OFF FOR 2 WKS)
     Route: 048
  6. IRON [Concomitant]
     Active Substance: IRON
     Dosage: UNK

REACTIONS (24)
  - Second primary malignancy [Unknown]
  - Bone cancer [Unknown]
  - Thrombosis [Unknown]
  - Neutropenia [Unknown]
  - Faeces discoloured [Unknown]
  - Urine odour abnormal [Unknown]
  - Breath odour [Unknown]
  - Hot flush [Not Recovered/Not Resolved]
  - Blood phosphorus decreased [Unknown]
  - Taste disorder [Unknown]
  - Cough [Unknown]
  - Productive cough [Unknown]
  - Insomnia [Unknown]
  - Swelling [Unknown]
  - Pain [Unknown]
  - Toxicity to various agents [Unknown]
  - Oral pain [Recovering/Resolving]
  - White blood cell count decreased [Unknown]
  - Fatigue [Unknown]
  - Platelet count decreased [Unknown]
  - Red blood cell count decreased [Unknown]
  - Product administration error [Unknown]
  - Product storage error [Unknown]
  - Off label use [Unknown]

NARRATIVE: CASE EVENT DATE: 20210729
